FAERS Safety Report 8240378-4 (Version None)
Quarter: 2012Q1

REPORT INFORMATION
  Report Type: 
  Country: None (occurrence: None)
  Receive Date: 20120328
  Receipt Date: 20120323
  Transmission Date: 20120608
  Serious: Yes (Other)
  Sender: FDA-Public Use
  Company Number: US-PFIZER INC-2012076092

PATIENT
  Sex: Male
  Weight: 99.32 kg

DRUGS (5)
  1. GEODON [Suspect]
     Indication: ANXIETY
     Dosage: 40 MG, DAILY
  2. GEODON [Suspect]
     Dosage: 60 MG, DAILY
     Dates: start: 20110101
  3. WELLBUTRIN [Concomitant]
     Indication: DEPRESSION
     Dosage: 300 MG, DAILY
  4. FINASTERIDE [Concomitant]
     Indication: PROSTATIC DISORDER
     Dosage: 5 MG, DAILY
  5. ALFUZOSIN [Concomitant]
     Indication: PROSTATIC DISORDER
     Dosage: 10 MG, DAILY

REACTIONS (6)
  - HEART RATE INCREASED [None]
  - WEIGHT DECREASED [None]
  - HYPERHIDROSIS [None]
  - HYPOTENSION [None]
  - DISORIENTATION [None]
  - TREMOR [None]
